FAERS Safety Report 7262135-8 (Version None)
Quarter: 2011Q1

REPORT INFORMATION
  Report Type: 
  Country: None (occurrence: None)
  Receive Date: 20110130
  Receipt Date: 20101201
  Transmission Date: 20110831
  Serious: No
  Sender: FDA-Public Use
  Company Number: US-ABBOTT-10P-163-0689240-00

PATIENT
  Sex: Female
  Weight: 90.8 kg

DRUGS (13)
  1. CALTRATE [Concomitant]
     Indication: OSTEOPOROSIS
     Dosage: 600/400 MILLIGRAMS
  2. DIOVAN HCT [Concomitant]
     Indication: HYPERTENSION
  3. JANUVIA [Concomitant]
     Indication: DIABETES MELLITUS
  4. CLONAZEPAM [Concomitant]
     Indication: ANXIETY
  5. HUMIRA [Suspect]
     Indication: RHEUMATOID ARTHRITIS
     Dates: start: 20101101
  6. RENAXA [Concomitant]
     Indication: CARDIAC DISORDER
  7. HYDROCODONE [Concomitant]
     Indication: PAIN
  8. PROTONIX [Concomitant]
     Indication: IRRITABLE BOWEL SYNDROME
  9. CALAN [Concomitant]
     Indication: HYPERTENSION
  10. HYDROXYCHLOROQUINE [Concomitant]
     Indication: RHEUMATOID ARTHRITIS
  11. TOPROL-XL [Concomitant]
     Indication: HYPERTENSION
  12. TRAZODONE HCL [Concomitant]
     Indication: INSOMNIA
  13. CELEBREX [Concomitant]
     Indication: RHEUMATOID ARTHRITIS

REACTIONS (4)
  - DIARRHOEA [None]
  - NAUSEA [None]
  - RETCHING [None]
  - ABDOMINAL PAIN [None]
